FAERS Safety Report 4632696-3 (Version None)
Quarter: 2005Q2

REPORT INFORMATION
  Report Type: 
  Country: None (occurrence: None)
  Receive Date: 20050412
  Receipt Date: 20050331
  Transmission Date: 20051028
  Serious: Yes (Hospitalization)
  Sender: FDA-Public Use
  Company Number: US-JNJFOC-20050400627

PATIENT
  Sex: Female
  Weight: 68.95 kg

DRUGS (9)
  1. INFLIXIMAB [Suspect]
     Indication: RHEUMATOID ARTHRITIS
     Route: 042
  2. INDAPAMIDE [Concomitant]
  3. TOPROL-XL [Concomitant]
  4. LIPITOR [Concomitant]
  5. ASPIRIN [Concomitant]
  6. FOLIC ACID [Concomitant]
  7. PLAVIX [Concomitant]
  8. MOBIC [Concomitant]
  9. METHOTREXATE [Concomitant]

REACTIONS (2)
  - CHRONIC OBSTRUCTIVE AIRWAYS DISEASE EXACERBATED [None]
  - PNEUMONIA [None]
